FAERS Safety Report 13579344 (Version 1)
Quarter: 2017Q2

REPORT INFORMATION
  Report Type: Other
  Country: US (occurrence: US)
  Receive Date: 20170525
  Receipt Date: 20170525
  Transmission Date: 20170830
  Serious: Yes (Other)
  Sender: FDA-Public Use
  Company Number: US-DEXPHARM-20170775

PATIENT
  Age: 63 Year
  Sex: Female

DRUGS (1)
  1. HPBETACD-DICLOFENAC [Suspect]
     Active Substance: DICLOFENAC
     Indication: PROCEDURAL PAIN
     Dosage: 50MG
     Route: 040

REACTIONS (1)
  - Deep vein thrombosis [Unknown]
